FAERS Safety Report 14495907 (Version 1)
Quarter: 2018Q1

REPORT INFORMATION
  Report Type: Report from Study
  Country: EC (occurrence: EC)
  Receive Date: 20180207
  Receipt Date: 20180207
  Transmission Date: 20180509
  Serious: Yes (Other)
  Sender: FDA-Public Use
  Company Number: EC-UCBSA-2018003750

PATIENT
  Age: 58 Year
  Sex: Female

DRUGS (1)
  1. LACOSAMIDE. [Suspect]
     Active Substance: LACOSAMIDE
     Indication: EPILEPSY
     Dosage: 200 MG, ONCE DAILY (QD)
     Route: 048
     Dates: start: 20160822

REACTIONS (2)
  - Cough [Recovering/Resolving]
  - Asphyxia [Unknown]

NARRATIVE: CASE EVENT DATE: 20180116
